FAERS Safety Report 4330876-8 (Version None)
Quarter: 2004Q1

REPORT INFORMATION
  Report Type: 
  Country: None (occurrence: None)
  Receive Date: 20040303
  Receipt Date: 20040311
  Transmission Date: 20041129
  Serious: Yes (Other)
  Sender: FDA-Public Use
  Company Number: USA040361839

PATIENT
  Age: 71 Year
  Sex: Female

DRUGS (11)
  1. FORTEO [Suspect]
     Indication: OSTEOPOROSIS
     Dosage: 20 UG/ 1 DAY
     Dates: start: 20040305
  2. LOPRESSOR [Concomitant]
  3. PRILOSEC [Concomitant]
  4. PROCARDIA [Concomitant]
  5. VALIUM [Concomitant]
  6. VIOXX [Concomitant]
  7. FIORINAL [Concomitant]
  8. PARAFON FORTE [Concomitant]
  9. ASPIRIN W/CODEINE [Concomitant]
  10. EFFEXOR XR [Concomitant]
  11. CALCIUM [Concomitant]

REACTIONS (2)
  - APHASIA [None]
  - TRANSIENT ISCHAEMIC ATTACK [None]
